FAERS Safety Report 12798770 (Version 1)
Quarter: 2016Q3

REPORT INFORMATION
  Report Type: Spontaneous
  Country: US (occurrence: US)
  Receive Date: 20160930
  Receipt Date: 20160930
  Transmission Date: 20161109
  Serious: Yes (Hospitalization)
  Sender: FDA-Public Use
  Company Number: US-APOTEX-2016AP012288

PATIENT
  Age: 41 Year
  Sex: Male

DRUGS (4)
  1. METFORMIN [Concomitant]
     Active Substance: METFORMIN HYDROCHLORIDE
     Indication: PRODUCT USED FOR UNKNOWN INDICATION
     Dosage: UNK
     Route: 065
  2. FLUCONAZOLE TABLETS [Suspect]
     Active Substance: FLUCONAZOLE
     Dosage: 400 MG, BID
     Route: 065
  3. LISINOPRIL. [Concomitant]
     Active Substance: LISINOPRIL
     Indication: PRODUCT USED FOR UNKNOWN INDICATION
     Dosage: UNK
     Route: 065
  4. FLUCONAZOLE TABLETS [Suspect]
     Active Substance: FLUCONAZOLE
     Indication: COCCIDIOIDOMYCOSIS
     Dosage: INITIAL DOSE NOT STATED
     Route: 065

REACTIONS (7)
  - Nausea [Unknown]
  - Condition aggravated [Recovering/Resolving]
  - Eosinophilia [Unknown]
  - Vomiting [Unknown]
  - Pyrexia [Unknown]
  - Rash maculo-papular [Recovering/Resolving]
  - Abdominal pain [Unknown]
